FAERS Safety Report 14200364 (Version 1)
Quarter: 2017Q4

REPORT INFORMATION
  Report Type: Spontaneous
  Country: US (occurrence: US)
  Receive Date: 20171117
  Receipt Date: 20171117
  Transmission Date: 20180321
  Serious: Yes (Hospitalization)
  Sender: FDA-Public Use
  Company Number: US-NOVOPROD-519560

PATIENT
  Age: 25 Year
  Sex: Male
  Weight: 66 kg

DRUGS (2)
  1. NOVOLOG [Suspect]
     Active Substance: INSULIN ASPART
     Indication: TYPE 1 DIABETES MELLITUS
     Dosage: 60 U, UNK
     Dates: start: 20141114, end: 20161222
  2. NOVOLOG [Suspect]
     Active Substance: INSULIN ASPART
     Dosage: 60 U, UNK
     Dates: start: 20170413

REACTIONS (1)
  - Diabetic ketoacidosis [Recovered/Resolved]

NARRATIVE: CASE EVENT DATE: 20161114
